FAERS Safety Report 9137167 (Version 1)
Quarter: 2013Q1

REPORT INFORMATION
  Report Type: Spontaneous
  Country: US (occurrence: US)
  Receive Date: 20130304
  Receipt Date: 20130304
  Transmission Date: 20140127
  Serious: No
  Sender: FDA-Public Use
  Company Number: US-PFIZER INC-2013070801

PATIENT
  Age: 50 Year
  Sex: Male
  Weight: 63.04 kg

DRUGS (2)
  1. BENEFIX [Suspect]
     Indication: FACTOR IX DEFICIENCY
     Dosage: 3 IU/KG, WEEKLY OR ONCE/WEEK
  2. BENEFIX [Suspect]
     Indication: PROPHYLAXIS

REACTIONS (2)
  - Joint injury [Unknown]
  - Off label use [Unknown]
